FAERS Safety Report 19812830 (Version 1)
Quarter: 2021Q3

REPORT INFORMATION
  Report Type: Spontaneous
  Country: US (occurrence: US)
  Receive Date: 20210907
  Receipt Date: 20210907
  Transmission Date: 20211014
  Serious: Yes (Hospitalization)
  Sender: FDA-Public Use
  Company Number: None

PATIENT
  Sex: Male

DRUGS (2)
  1. ADYNOVATE [Suspect]
     Active Substance: ANTIHEMOPHILIC FACTOR, HUMAN RECOMBINANT
     Indication: FACTOR VIII DEFICIENCY
     Dosage: ? OTHER STRENGTH:495 U;?OTHER DOSE:1500 U; ANC PRN?
     Route: 042
     Dates: start: 20191009
  2. ADYNOVATE [Suspect]
     Active Substance: ANTIHEMOPHILIC FACTOR, HUMAN RECOMBINANT
     Indication: PRODUCT USED FOR UNKNOWN INDICATION
     Dosage: ?OTHER STRENGTH:900 U;?OTHER DOSE:1500 U; ANC PRN?
     Route: 042
     Dates: start: 20191009

REACTIONS (5)
  - Dehydration [None]
  - Product dose omission in error [None]
  - Accident [None]
  - Fall [None]
  - Concussion [None]
